FAERS Safety Report 17504923 (Version 1)
Quarter: 2020Q1

REPORT INFORMATION
  Report Type: Report from Study
  Country: EG (occurrence: EG)
  Receive Date: 20200305
  Receipt Date: 20200305
  Transmission Date: 20200409
  Serious: Yes (Death, Hospitalization, Other)
  Sender: FDA-Public Use
  Company Number: EG-SEATTLE GENETICS-2019SGN03029

PATIENT
  Sex: Male

DRUGS (1)
  1. BRENTUXIMAB VEDOTIN-MPI [Suspect]
     Active Substance: BRENTUXIMAB VEDOTIN
     Indication: HODGKIN^S DISEASE
     Dosage: UNK
     Route: 042
     Dates: start: 20190807

REACTIONS (11)
  - Haemoglobin decreased [Unknown]
  - Dehydration [Unknown]
  - White blood cell count decreased [Unknown]
  - Platelet count decreased [Unknown]
  - Death [Fatal]
  - Diarrhoea [Unknown]
  - Splenomegaly [Unknown]
  - White blood cell count increased [Unknown]
  - Circulatory collapse [Unknown]
  - Vomiting [Unknown]
  - Weight decreased [Unknown]
